FAERS Safety Report 15210276 (Version 1)
Quarter: 2018Q3

REPORT INFORMATION
  Report Type: Spontaneous
  Country: US (occurrence: US)
  Receive Date: 20180629
  Receipt Date: 20180629
  Transmission Date: 20181010
  Serious: Yes (Other)
  Sender: FDA-Public Use
  Company Number: None

PATIENT
  Age: 79 Year
  Sex: Male
  Weight: 86.18 kg

DRUGS (1)
  1. RISEDRONATE SODIUM. [Suspect]
     Active Substance: RISEDRONATE SODIUM
     Indication: OSTEOPOROSIS
     Dosage: ?          OTHER FREQUENCY:IN THE MORNING;?
     Route: 048
     Dates: start: 20180614

REACTIONS (7)
  - Loss of personal independence in daily activities [None]
  - Arthralgia [None]
  - Spinal pain [None]
  - Joint swelling [None]
  - Peripheral swelling [None]
  - Neck pain [None]
  - Oedema peripheral [None]

NARRATIVE: CASE EVENT DATE: 20180614
